FAERS Safety Report 9377376 (Version 1)
Quarter: 2013Q3

REPORT INFORMATION
  Report Type: Spontaneous
  Country: GB (occurrence: GB)
  Receive Date: 20130701
  Receipt Date: 20130701
  Transmission Date: 20140515
  Serious: Yes (Other)
  Sender: FDA-Public Use
  Company Number: GB-009507513-1306GBR010955

PATIENT
  Age: 75 Year
  Sex: Male

DRUGS (6)
  1. SIMVASTATIN [Suspect]
     Dosage: 400 MG, UNK
     Route: 048
  2. BEZAFIBRATE [Interacting]
     Dosage: 40 MG, UNK
     Route: 048
  3. ALLOPURINOL [Concomitant]
  4. ASPIRIN [Concomitant]
  5. NIFEDIPINE [Concomitant]
  6. PERINDOPRIL [Concomitant]

REACTIONS (2)
  - Pain in extremity [Not Recovered/Not Resolved]
  - Drug interaction [Unknown]
